FAERS Safety Report 17358531 (Version 2)
Quarter: 2020Q1

REPORT INFORMATION
  Report Type: Spontaneous
  Country: US (occurrence: US)
  Receive Date: 20200201
  Receipt Date: 20200205
  Transmission Date: 20200409
  Serious: No
  Sender: FDA-Public Use
  Company Number: US-BAYER-2020-017558

PATIENT
  Age: 79 Year
  Sex: Male

DRUGS (1)
  1. ALEVE [Suspect]
     Active Substance: NAPROXEN SODIUM
     Indication: PAIN
     Dosage: 2 DF, Q8HR
     Route: 048

REACTIONS (2)
  - Incorrect dosage administered [Unknown]
  - Madarosis [Unknown]

NARRATIVE: CASE EVENT DATE: 201912
